FAERS Safety Report 11638749 (Version 1)
Quarter: 2015Q4

REPORT INFORMATION
  Report Type: Report from Study
  Country: DE (occurrence: DE)
  Receive Date: 20151016
  Receipt Date: 20151016
  Transmission Date: 20160304
  Serious: Yes (Hospitalization)
  Sender: FDA-Public Use
  Company Number: DE-ABBVIE-15P-062-1479519-00

PATIENT
  Sex: Male

DRUGS (1)
  1. DUODOPA [Suspect]
     Active Substance: CARBIDOPA\LEVODOPA
     Indication: PARKINSON^S DISEASE
     Dosage: MD 2,8 ML; CRD 5 ML/ H; CRN 4,8 ML/ H; ED 2,5 ML
     Route: 050
     Dates: start: 20130228

REACTIONS (1)
  - Psychosomatic disease [Not Recovered/Not Resolved]
